FAERS Safety Report 18105610 (Version 8)
Quarter: 2023Q1

REPORT INFORMATION
  Report Type: Spontaneous
  Country: US (occurrence: US)
  Receive Date: 20200804
  Receipt Date: 20230111
  Transmission Date: 20230418
  Serious: No
  Sender: FDA-Public Use
  Company Number: US-BIOGEN-2019BI00781277

PATIENT
  Sex: Female

DRUGS (5)
  1. TECFIDERA [Suspect]
     Active Substance: DIMETHYL FUMARATE
     Indication: Multiple sclerosis
     Route: 050
     Dates: start: 20190823
  2. TECFIDERA [Suspect]
     Active Substance: DIMETHYL FUMARATE
     Route: 050
     Dates: start: 20190827
  3. TECFIDERA [Suspect]
     Active Substance: DIMETHYL FUMARATE
     Route: 050
     Dates: start: 201909
  4. TECFIDERA [Suspect]
     Active Substance: DIMETHYL FUMARATE
     Route: 050
     Dates: start: 20190823
  5. TECFIDERA [Suspect]
     Active Substance: DIMETHYL FUMARATE
     Route: 050
     Dates: start: 20220808

REACTIONS (22)
  - Product dose omission in error [Unknown]
  - Intentional product misuse [Recovered/Resolved]
  - Hypertension [Not Recovered/Not Resolved]
  - Headache [Not Recovered/Not Resolved]
  - Multiple sclerosis [Not Recovered/Not Resolved]
  - Heart rate increased [Unknown]
  - Fatigue [Unknown]
  - Dizziness [Unknown]
  - Balance disorder [Unknown]
  - Pelvic pain [Unknown]
  - COVID-19 [Unknown]
  - Constipation [Unknown]
  - Gastric ulcer [Recovered/Resolved]
  - Fall [Recovered/Resolved]
  - Abdominal discomfort [Recovered/Resolved]
  - Multiple sclerosis relapse [Recovered/Resolved]
  - Flushing [Not Recovered/Not Resolved]
  - Burning sensation [Unknown]
  - Dyspepsia [Unknown]
  - Diarrhoea [Unknown]
  - Abdominal pain upper [Recovered/Resolved]
  - Alopecia [Recovered/Resolved]

NARRATIVE: CASE EVENT DATE: 20190101
